FAERS Safety Report 6421662-3 (Version None)
Quarter: 2009Q4

REPORT INFORMATION
  Report Type: 
  Country: None (occurrence: None)
  Receive Date: 20091030
  Receipt Date: 20091019
  Transmission Date: 20100525
  Serious: Yes (Hospitalization)
  Sender: FDA-Public Use
  Company Number: IL-ROCHE-663458

PATIENT
  Sex: Female
  Weight: 67 kg

DRUGS (2)
  1. PEG-INTERFERON ALFA 2A (RO 25-8310) [Suspect]
     Dosage: LAST DOSE PRIOR TO SAE: 10 OCT 2009.  THERAPY WAS PERMANENTLY DISCONTINUED.
     Route: 058
     Dates: start: 20090702, end: 20091011
  2. RIBAVIRIN [Suspect]
     Dosage: LAST DOSE PRIOR TO SAE: 10 OCTOBER 2009.  THERAPY WAS PERMANENTLY DISCONTINUED.
     Route: 048
     Dates: start: 20090702, end: 20091011

REACTIONS (1)
  - UVEITIS [None]
